FAERS Safety Report 8481354-6 (Version None)
Quarter: 2012Q3

REPORT INFORMATION
  Report Type: 
  Country: None (occurrence: None)
  Receive Date: 20120702
  Receipt Date: 20120622
  Transmission Date: 20120928
  Serious: Yes (Other)
  Sender: FDA-Public Use
  Company Number: US-JNJFOC-20120405389

PATIENT
  Age: 10 Year
  Sex: Male

DRUGS (7)
  1. REMICADE [Suspect]
     Indication: CROHN'S DISEASE
     Route: 042
     Dates: start: 20111001, end: 20111130
  2. DEXAMETHASONE [Concomitant]
     Indication: PREMEDICATION
     Route: 065
     Dates: start: 20111130
  3. PREDNISONE TAB [Concomitant]
     Route: 065
     Dates: start: 20111120
  4. REMICADE [Suspect]
     Route: 042
     Dates: start: 20110201, end: 20110201
  5. ACETAMINOPHEN [Concomitant]
     Indication: PREMEDICATION
     Route: 065
     Dates: start: 20111130
  6. FLOVENT [Concomitant]
     Indication: ASTHMA
     Route: 055
  7. BENADRYL [Concomitant]
     Indication: PREMEDICATION
     Route: 065
     Dates: start: 20111130

REACTIONS (7)
  - INFUSION RELATED REACTION [None]
  - TACHYCARDIA [None]
  - WHEEZING [None]
  - URTICARIA [None]
  - DYSPNOEA [None]
  - HYPOTENSION [None]
  - PRURITUS [None]
